FAERS Safety Report 6278944-8 (Version None)
Quarter: 2009Q3

REPORT INFORMATION
  Report Type: 
  Country: None (occurrence: None)
  Receive Date: 20090723
  Receipt Date: 20090715
  Transmission Date: 20100115
  Serious: Yes (Hospitalization, Disabling, Other)
  Sender: FDA-Public Use
  Company Number: US-ELI_LILLY_AND_COMPANY-US200907003285

PATIENT
  Sex: Female

DRUGS (17)
  1. HUMALOG MIX 75/25 [Suspect]
     Dosage: UNK, UNK
     Dates: start: 20070201
  2. HUMALOG MIX 75/25 [Suspect]
     Dosage: UNK, UNK
  3. GABAPENTIN [Concomitant]
  4. MS CONTIN [Concomitant]
  5. EFFEXOR XR [Concomitant]
  6. CYTOMEL [Concomitant]
  7. GLYBURIDE [Concomitant]
  8. FLEXERIL [Concomitant]
  9. XANAX [Concomitant]
  10. SEROQUEL [Concomitant]
  11. SYNTHROID [Concomitant]
  12. AMBIEN [Concomitant]
  13. ADVAIR HFA [Concomitant]
  14. VENTOLIN                                /SCH/ [Concomitant]
  15. ALBUTEROL SULFATE [Concomitant]
  16. PERCOCET [Concomitant]
  17. DEPO-PROVERA [Concomitant]

REACTIONS (14)
  - BACK PAIN [None]
  - BLOOD GLUCOSE INCREASED [None]
  - BREAST MASS [None]
  - CONFUSIONAL STATE [None]
  - GAIT DISTURBANCE [None]
  - HYPERSOMNIA [None]
  - INSOMNIA [None]
  - MALAISE [None]
  - MASS [None]
  - OESOPHAGEAL OBSTRUCTION [None]
  - PRODUCT QUALITY ISSUE [None]
  - RENAL CANCER [None]
  - THROAT TIGHTNESS [None]
  - THYROID DISORDER [None]
